FAERS Safety Report 11075156 (Version 1)
Quarter: 2015Q2

REPORT INFORMATION
  Report Type: Spontaneous
  Country: NL (occurrence: NL)
  Receive Date: 20150429
  Receipt Date: 20150429
  Transmission Date: 20150821
  Serious: Yes (Hospitalization)
  Sender: FDA-Public Use
  Company Number: NL-TEVA-556969ISR

PATIENT
  Age: 86 Year
  Sex: Female
  Weight: 61 kg

DRUGS (9)
  1. MORFINE TABLET MGA  10MG (SULFAAT) [Concomitant]
     Dosage: TWICE DAILY ONE PIECE
     Route: 048
     Dates: start: 2015
  2. AMOXICILLINE CAPSULE 500MG [Suspect]
     Active Substance: AMOXICILLIN
     Indication: RESPIRATORY TRACT INFECTION
     Dosage: 4 TIMES DAILY 1 PIECE, EXTRA INFO: 500 MG
     Route: 048
     Dates: start: 20150321, end: 20150331
  3. MOVICOLON POEDER VOOR DRANK IN SACHET [Concomitant]
     Dosage: ONCE DAILY ONE PIECE
     Route: 048
     Dates: start: 2015
  4. PARACETAMOL TABLET  500MG [Concomitant]
     Active Substance: ACETAMINOPHEN
     Dosage: 3 TIMES DAILY ONE PIECE
     Route: 048
     Dates: start: 2015
  5. DILTIAZEM CAPSULE MGA 200MG [Concomitant]
     Dosage: ONCE DAILY ONE PIECE
     Route: 048
     Dates: start: 2015
  6. ATORVASTATINE KAUWTABLET 20MG [Concomitant]
     Dosage: ONCE DAILY ONE PIECE
     Route: 048
     Dates: start: 2015
  7. LOSARTAN TABLET FO 50MG [Interacting]
     Active Substance: LOSARTAN
     Indication: HYPERTENSION
     Dosage: ONCE DAILY ONE PIECE
     Route: 048
     Dates: start: 20150306, end: 20150331
  8. AMLODIPINE TABLET 5MG (MALEAAT) [Interacting]
     Active Substance: AMLODIPINE BESYLATE
     Indication: HYPERTENSION
     Dosage: ONCE DAILY ONE PIECE
     Route: 048
     Dates: start: 20150321, end: 20150331
  9. CALCIUMCARB/COLECALC TAB 1,25G/800IE (500MG CA) [Concomitant]
     Dosage: ONCE DAILY ONE PIECE
     Route: 030
     Dates: start: 2015

REACTIONS (2)
  - Drug interaction [Recovering/Resolving]
  - Hepatotoxicity [Recovering/Resolving]

NARRATIVE: CASE EVENT DATE: 20150322
